FAERS Safety Report 15058614 (Version 5)
Quarter: 2024Q4

REPORT INFORMATION
  Report Type: Other
  Country: IT (occurrence: IT)
  Receive Date: 20180625
  Receipt Date: 20241030
  Transmission Date: 20250115
  Serious: Yes (Hospitalization, Other)
  Sender: MACLEODS
  Company Number: IT-MINISAL02-471408

PATIENT

DRUGS (11)
  1. AMLODIPINE BESYLATE [Suspect]
     Active Substance: AMLODIPINE BESYLATE
     Indication: Product used for unknown indication
     Dosage: 14 DOSAGE FORM, 1 TOTAL, ABUSE / MISUSE
     Route: 048
     Dates: start: 20180118, end: 20180118
  2. ATORVASTATIN [Suspect]
     Active Substance: ATORVASTATIN
     Indication: Product used for unknown indication
     Dosage: 50 DOSAGE FORM, 1 TOTAL, ABUSE / MISUSE
     Route: 048
     Dates: start: 20180118, end: 20180118
  3. HYDROCHLOROTHIAZIDE\OLMESARTAN MEDOXOMIL [Suspect]
     Active Substance: HYDROCHLOROTHIAZIDE\OLMESARTAN MEDOXOMIL
     Indication: Product used for unknown indication
     Dosage: 64 DOSAGE FORM, 1 TOTAL, TABLET
     Route: 048
     Dates: start: 20180118, end: 20180118
  4. HYDROCHLOROTHIAZIDE\OLMESARTAN MEDOXOMIL [Suspect]
     Active Substance: HYDROCHLOROTHIAZIDE\OLMESARTAN MEDOXOMIL
     Dosage: 64 DOSAGE FORM, 1 TOTAL OVERDOSE, FILM COATED TABLET
     Route: 048
     Dates: start: 20180118, end: 20180118
  5. BISOPROLOL [Suspect]
     Active Substance: BISOPROLOL\BISOPROLOL FUMARATE
     Indication: Product used for unknown indication
     Dosage: 28 DF, SINGLE FILM-COATED TABLET
     Route: 048
     Dates: start: 20180118, end: 20180118
  6. HYDROCHLOROTHIAZIDE\RAMIPRIL [Suspect]
     Active Substance: HYDROCHLOROTHIAZIDE\RAMIPRIL
     Indication: Product used for unknown indication
     Dosage: 64 DOSAGE FORM, TOTAL
     Route: 048
     Dates: start: 20180118, end: 20180118
  7. AMIODARONE HYDROCHLORIDE [Suspect]
     Active Substance: AMIODARONE HYDROCHLORIDE
     Indication: Product used for unknown indication
     Dosage: 20 DOSAGE FORM, 1 TOTAL, ABUSE/ MISUSE
     Route: 048
     Dates: start: 20180118, end: 20180118
  8. APIXABAN [Suspect]
     Active Substance: APIXABAN
     Indication: Product used for unknown indication
     Dosage: 60 DOSAGE FORM, SINGLEL, ABUSE/IMPROPER USE
     Route: 048
     Dates: start: 20180118, end: 20180118
  9. TAPENTADOL [Suspect]
     Active Substance: TAPENTADOL
     Indication: Product used for unknown indication
     Dosage: 80 DOSAGE FORM, 1 TOTAL
     Route: 048
     Dates: start: 20180118, end: 20180118
  10. TRIAZOLAM [Suspect]
     Active Substance: TRIAZOLAM
     Indication: Product used for unknown indication
     Dosage: 20 DOSAGE FORM, 1 TOTAL, TABLET, ABUSE / MISUSE
     Route: 048
     Dates: start: 20180118, end: 20180118
  11. TAMSULOSIN HYDROCHLORIDE [Concomitant]
     Active Substance: TAMSULOSIN HYDROCHLORIDE
     Indication: Benign prostatic hyperplasia
     Dosage: UNK
     Route: 048

REACTIONS (4)
  - Intentional overdose [Unknown]
  - Drug abuse [Unknown]
  - Urinary incontinence [Recovering/Resolving]
  - Confusional state [Recovering/Resolving]

NARRATIVE: CASE EVENT DATE: 20180118
